FAERS Safety Report 23499366 (Version 1)
Quarter: 2024Q1

REPORT INFORMATION
  Report Type: Spontaneous
  Country: US (occurrence: US)
  Receive Date: 20240208
  Receipt Date: 20240208
  Transmission Date: 20240410
  Serious: Yes (Other)
  Sender: FDA-Public Use
  Company Number: US-MYLANLABS-2021M1018961

PATIENT
  Age: 46 Year
  Sex: Male
  Weight: 116.1 kg

DRUGS (55)
  1. OMEPRAZOLE [Interacting]
     Active Substance: OMEPRAZOLE
     Indication: Product used for unknown indication
     Dosage: 40 MILLIGRAM, DAILY
     Route: 065
  2. WARFARIN SODIUM [Interacting]
     Active Substance: WARFARIN SODIUM
     Indication: Deep vein thrombosis
     Dosage: 90 MILLIGRAM, EVERY WEEK
     Route: 065
     Dates: start: 20181001
  3. WARFARIN SODIUM [Interacting]
     Active Substance: WARFARIN SODIUM
     Dosage: 90 MILLIGRAM, EVERY WEEK
     Route: 065
     Dates: start: 20181009
  4. WARFARIN SODIUM [Interacting]
     Active Substance: WARFARIN SODIUM
     Dosage: 90 MILLIGRAM, EVERY WEEK
     Route: 065
     Dates: start: 20181106
  5. WARFARIN SODIUM [Interacting]
     Active Substance: WARFARIN SODIUM
     Dosage: 90 MILLIGRAM, EVERY WEEK
     Route: 065
     Dates: start: 20181204
  6. WARFARIN SODIUM [Interacting]
     Active Substance: WARFARIN SODIUM
     Dosage: 85 MILLIGRAM, EVERY WEEK
     Route: 065
     Dates: start: 20190115
  7. WARFARIN SODIUM [Interacting]
     Active Substance: WARFARIN SODIUM
     Dosage: 80 MILLIGRAM, EVERY WEEK
     Route: 065
     Dates: start: 20190205
  8. WARFARIN SODIUM [Interacting]
     Active Substance: WARFARIN SODIUM
     Dosage: 80 MILLIGRAM, EVERY WEEK
     Route: 065
     Dates: start: 20190226
  9. WARFARIN SODIUM [Interacting]
     Active Substance: WARFARIN SODIUM
     Dosage: 80 MILLIGRAM, EVERY WEEK
     Route: 065
     Dates: start: 20190318
  10. WARFARIN SODIUM [Interacting]
     Active Substance: WARFARIN SODIUM
     Dosage: 80 MILLIGRAM, EVERY WEEK (PATIENT RECEIVED EXTRA ONE-TIME 2.5-MG DOSE)
     Route: 065
     Dates: start: 20190411
  11. WARFARIN SODIUM [Interacting]
     Active Substance: WARFARIN SODIUM
     Dosage: 80 MILLIGRAM, EVERY WEEK (PATIENT RECEIVED EXTRA ONE-TIME 5-MG DOSE)
     Route: 065
     Dates: start: 20190502
  12. WARFARIN SODIUM [Interacting]
     Active Substance: WARFARIN SODIUM
     Dosage: 80 MILLIGRAM, EVERY WEEK
     Route: 065
     Dates: start: 20190516
  13. WARFARIN SODIUM [Interacting]
     Active Substance: WARFARIN SODIUM
     Dosage: 80 MILLIGRAM, EVERY WEEK
     Route: 065
     Dates: start: 20190618
  14. WARFARIN SODIUM [Interacting]
     Active Substance: WARFARIN SODIUM
     Dosage: 80 MILLIGRAM, EVERY WEEK
     Route: 065
     Dates: start: 20190625
  15. WARFARIN SODIUM [Interacting]
     Active Substance: WARFARIN SODIUM
     Dosage: 80 MILLIGRAM, EVERY WEEK
     Route: 065
     Dates: start: 20190702
  16. WARFARIN SODIUM [Interacting]
     Active Substance: WARFARIN SODIUM
     Dosage: 75 MILLIGRAM, EVERY WEEK
     Route: 065
     Dates: start: 20190709
  17. WARFARIN SODIUM [Interacting]
     Active Substance: WARFARIN SODIUM
     Dosage: 65 MILLIGRAM, EVERY WEEK
     Route: 065
     Dates: start: 20190716
  18. WARFARIN SODIUM [Interacting]
     Active Substance: WARFARIN SODIUM
     Dosage: 65 MILLIGRAM, EVERY WEEK
     Route: 065
     Dates: start: 20190723
  19. WARFARIN SODIUM [Interacting]
     Active Substance: WARFARIN SODIUM
     Dosage: 65 MILLIGRAM, EVERY WEEK
     Route: 065
     Dates: start: 20190731
  20. WARFARIN SODIUM [Interacting]
     Active Substance: WARFARIN SODIUM
     Dosage: 65 MILLIGRAM, EVERY WEEK
     Route: 065
     Dates: start: 20190813
  21. WARFARIN SODIUM [Interacting]
     Active Substance: WARFARIN SODIUM
     Dosage: 65 MILLIGRAM, EVERY WEEK
     Route: 065
     Dates: start: 20190827
  22. WARFARIN SODIUM [Interacting]
     Active Substance: WARFARIN SODIUM
     Dosage: 65 MILLIGRAM, EVERY WEEK
     Route: 065
     Dates: start: 20190917
  23. WARFARIN SODIUM [Interacting]
     Active Substance: WARFARIN SODIUM
     Dosage: 65 MILLIGRAM, EVERY WEEK
     Route: 065
     Dates: start: 20191022
  24. WARFARIN SODIUM [Interacting]
     Active Substance: WARFARIN SODIUM
     Dosage: 65 MILLIGRAM, EVERY WEEK
     Route: 065
     Dates: start: 20191119
  25. WARFARIN SODIUM [Interacting]
     Active Substance: WARFARIN SODIUM
     Dosage: 65 MILLIGRAM, EVERY WEEK
     Route: 065
     Dates: start: 20191212
  26. CARBAMAZEPINE [Interacting]
     Active Substance: CARBAMAZEPINE
     Indication: Epilepsy
     Dosage: UNK (600 MG ORALLY DAILY AND 900 MG ORALLY NIGHTLY)
     Route: 048
  27. EPIDIOLEX [Interacting]
     Active Substance: CANNABIDIOL
     Indication: Product used for unknown indication
     Dosage: 5 MILLIGRAM/KILOGRAM, DAILY
     Route: 065
     Dates: start: 20190625
  28. EPIDIOLEX [Interacting]
     Active Substance: CANNABIDIOL
     Dosage: 10 MILLIGRAM/KILOGRAM, DAILY
     Dates: start: 20190702
  29. EPIDIOLEX [Interacting]
     Active Substance: CANNABIDIOL
     Dosage: 15 MILLIGRAM/KILOGRAM, DAILY
     Route: 065
     Dates: start: 20190709
  30. EPIDIOLEX [Interacting]
     Active Substance: CANNABIDIOL
     Dosage: 20 MILLIGRAM/KILOGRAM, DAILY
     Route: 065
     Dates: start: 20190716
  31. EPIDIOLEX [Interacting]
     Active Substance: CANNABIDIOL
     Dosage: 20 MILLIGRAM/KILOGRAM, DAILY
     Route: 065
     Dates: start: 20190723
  32. EPIDIOLEX [Interacting]
     Active Substance: CANNABIDIOL
     Dosage: 20 MILLIGRAM/KILOGRAM, DAILY
     Route: 065
     Dates: start: 20190731
  33. EPIDIOLEX [Interacting]
     Active Substance: CANNABIDIOL
     Dosage: 20 MILLIGRAM/KILOGRAM, DAILY
     Route: 065
     Dates: start: 20190813
  34. EPIDIOLEX [Interacting]
     Active Substance: CANNABIDIOL
     Dosage: 20 MILLIGRAM/KILOGRAM, DAILY
     Route: 065
     Dates: start: 20190827
  35. EPIDIOLEX [Interacting]
     Active Substance: CANNABIDIOL
     Dosage: 20 MILLIGRAM/KILOGRAM, DAILY
     Route: 065
     Dates: start: 20190917
  36. EPIDIOLEX [Interacting]
     Active Substance: CANNABIDIOL
     Dosage: 20 MILLIGRAM/KILOGRAM, DAILY
     Route: 065
     Dates: start: 20191022
  37. EPIDIOLEX [Interacting]
     Active Substance: CANNABIDIOL
     Dosage: 20 MILLIGRAM/KILOGRAM, DAILY
     Route: 065
     Dates: start: 20191119
  38. EPIDIOLEX [Interacting]
     Active Substance: CANNABIDIOL
     Dosage: 20 MILLIGRAM/KILOGRAM, DAILY
     Route: 065
     Dates: start: 20191212
  39. LACOSAMIDE [Concomitant]
     Active Substance: LACOSAMIDE
     Indication: Epilepsy
     Dosage: 50 MILLIGRAM, TWO TIMES A DAY
     Route: 048
  40. LEVETIRACETAM [Concomitant]
     Active Substance: LEVETIRACETAM
     Indication: Epilepsy
     Dosage: 2000 MILLIGRAM, TWO TIMES A DAY
     Route: 048
  41. ACETAMINOPHEN [Concomitant]
     Active Substance: ACETAMINOPHEN
     Indication: Product used for unknown indication
     Dosage: 1000 MILLIGRAM, TWO TIMES A DAY (AS NEEDED)
     Route: 065
  42. ATORVASTATIN [Concomitant]
     Active Substance: ATORVASTATIN
     Indication: Product used for unknown indication
     Dosage: 40 MILLIGRAM (NIGHTLY)
     Route: 065
  43. AZELASTINE [Concomitant]
     Active Substance: AZELASTINE\AZELASTINE HYDROCHLORIDE
     Indication: Product used for unknown indication
     Dosage: UNK ((2 SPRAYS IN BOTH NARES) AS)
     Route: 065
  44. CARVEDILOL [Concomitant]
     Active Substance: CARVEDILOL
     Indication: Product used for unknown indication
     Dosage: 6.25 MILLIGRAM, TWO TIMES A DAY
     Route: 065
  45. CETIRIZINE [Concomitant]
     Active Substance: CETIRIZINE HYDROCHLORIDE
     Indication: Product used for unknown indication
     Dosage: 10 MILLIGRAM, DAILY
     Route: 065
  46. FLUTICASONE [Concomitant]
     Active Substance: FLUTICASONE
     Indication: Product used for unknown indication
     Dosage: UNK, DAILY ((1 SPRAY IN EACH NARES))
     Route: 065
  47. FOLIC ACID [Concomitant]
     Active Substance: FOLIC ACID
     Indication: Product used for unknown indication
     Dosage: 1 MILLIGRAM, DAILY
     Route: 065
  48. KETOCONAZOLE [Concomitant]
     Active Substance: KETOCONAZOLE
     Indication: Product used for unknown indication
     Dosage: UNK, TWO TIMES A DAY (APPLIED TO FEET)
     Route: 061
  49. METHOTREXATE [Concomitant]
     Active Substance: METHOTREXATE
     Indication: Product used for unknown indication
     Dosage: 20 MILLIGRAM, EVERY WEEK
     Route: 065
  50. MONTELUKAST [Concomitant]
     Active Substance: MONTELUKAST SODIUM
     Indication: Product used for unknown indication
     Dosage: 10 MILLIGRAM (NIGHTLY)
     Route: 065
  51. MUPIROCIN [Concomitant]
     Active Substance: MUPIROCIN
     Indication: Product used for unknown indication
     Dosage: UNK, 3 TIMES A DAY
     Route: 061
  52. MYCOPHENOLIC ACID [Concomitant]
     Active Substance: MYCOPHENOLIC ACID
     Indication: Product used for unknown indication
     Dosage: 1080 MILLIGRAM, TWO TIMES A DAY
     Route: 065
  53. PREDNISONE [Concomitant]
     Active Substance: PREDNISONE
     Indication: Product used for unknown indication
     Dosage: 20 MILLIGRAM, DAILY
     Route: 065
  54. RANITIDINE [Concomitant]
     Active Substance: RANITIDINE
     Indication: Product used for unknown indication
     Dosage: 300 MILLIGRAM, DAILY
     Route: 065
  55. TRAMADOL [Concomitant]
     Active Substance: TRAMADOL\TRAMADOL HYDROCHLORIDE
     Indication: Product used for unknown indication
     Dosage: 50 MILLIGRAM, FOUR TIMES/DAY (AS NEEDED)
     Route: 065

REACTIONS (2)
  - International normalised ratio increased [Unknown]
  - Drug interaction [Unknown]
